FAERS Safety Report 5575430-5 (Version None)
Quarter: 2007Q4

REPORT INFORMATION
  Report Type: 
  Country: None (occurrence: None)
  Receive Date: 20071227
  Receipt Date: 20071218
  Transmission Date: 20080405
  Serious: Yes (Hospitalization)
  Sender: FDA-Public Use
  Company Number: DE-BOEHRINGER INGELHEIM PHARMACEUTICALS, INC.-2007-DE-07435GD

PATIENT

DRUGS (15)
  1. NEVIRAPINE [Suspect]
  2. SERTRALINE [Suspect]
  3. MELOXICAM [Suspect]
  4. PIROXICAM [Suspect]
  5. ACETAMINOPHEN [Suspect]
  6. ACETYLSALICYLIC ACID SRT [Suspect]
  7. IBUPROFEN [Suspect]
  8. METAMIZOLE [Suspect]
  9. PREDNISONE TAB [Suspect]
  10. N-ACETYLCYSTEINE [Suspect]
  11. AMBROXOL [Suspect]
  12. BROMHEXINE [Suspect]
  13. RANITIDINE HCL [Suspect]
  14. DOXYLAMINE [Suspect]
  15. OTHER HIGHLY SUSPECTED DRUG [Suspect]

REACTIONS (1)
  - SKIN REACTION [None]
